FAERS Safety Report 23281128 (Version 1)
Quarter: 2023Q4

REPORT INFORMATION
  Report Type: Spontaneous
  Country: US (occurrence: US)
  Receive Date: 20231211
  Receipt Date: 20231211
  Transmission Date: 20240110
  Serious: Yes (Other)
  Sender: FDA-Public Use
  Company Number: US-EYEPOINT PHARMACEUTICALS, INC.-US-EYP-23-00333

PATIENT
  Age: 66 Year
  Sex: Female

DRUGS (9)
  1. DEXAMETHASONE [Suspect]
     Active Substance: DEXAMETHASONE
     Indication: Bacterial endophthalmitis
     Dosage: UNK
     Route: 031
  2. DEXAMETHASONE [Suspect]
     Active Substance: DEXAMETHASONE
  3. VANCOMYCIN [Suspect]
     Active Substance: VANCOMYCIN
     Indication: Bacterial endophthalmitis
     Dosage: UNK
     Route: 031
  4. CEFTAZIDIME [Suspect]
     Active Substance: CEFTAZIDIME
     Indication: Bacterial endophthalmitis
     Dosage: UNK
     Route: 031
  5. VANCOMYCIN [Suspect]
     Active Substance: VANCOMYCIN
     Indication: Bacterial endophthalmitis
     Dosage: UNK
     Route: 061
  6. TOBRAMYCIN [Suspect]
     Active Substance: TOBRAMYCIN
     Indication: Bacterial endophthalmitis
     Dosage: UNK
     Route: 061
  7. ATROPINE [Suspect]
     Active Substance: ATROPINE\ATROPINE SULFATE
     Indication: Bacterial endophthalmitis
     Dosage: UNK
     Route: 061
  8. PREDNISOLONE ACETATE [Suspect]
     Active Substance: PREDNISOLONE ACETATE
     Indication: Bacterial endophthalmitis
     Dosage: UNK
     Route: 061
  9. MOXIFLOXACIN [Suspect]
     Active Substance: MOXIFLOXACIN
     Indication: Bacterial endophthalmitis
     Dosage: UNK
     Route: 061

REACTIONS (4)
  - Blindness [Not Recovered/Not Resolved]
  - Retinal detachment [Not Recovered/Not Resolved]
  - Choroidal detachment [Not Recovered/Not Resolved]
  - Off label use [Unknown]
